FAERS Safety Report 19427039 (Version 1)
Quarter: 2021Q2

REPORT INFORMATION
  Report Type: Spontaneous
  Country: US (occurrence: US)
  Receive Date: 20210616
  Receipt Date: 20210616
  Transmission Date: 20210717
  Serious: Yes (Hospitalization)
  Sender: FDA-Public Use
  Company Number: US-CELGENEUS-USA-20210603168

PATIENT
  Age: 90 Year
  Sex: Male

DRUGS (1)
  1. REVLIMID [Suspect]
     Active Substance: LENALIDOMIDE
     Indication: PLASMA CELL MYELOMA
     Dosage: 15 MILLIGRAM
     Route: 048
     Dates: start: 20210304, end: 20210604

REACTIONS (5)
  - Gait inability [Unknown]
  - Asthenia [Unknown]
  - Vomiting [Unknown]
  - Urinary tract infection [Unknown]
  - Dehydration [Unknown]

NARRATIVE: CASE EVENT DATE: 20210604
